FAERS Safety Report 7429809-7 (Version None)
Quarter: 2011Q2

REPORT INFORMATION
  Report Type: 
  Country: None (occurrence: None)
  Receive Date: 20110421
  Receipt Date: 20110413
  Transmission Date: 20111010
  Serious: Yes (Other)
  Sender: FDA-Public Use
  Company Number: IT-JNJFOC-20110405695

PATIENT
  Sex: Male

DRUGS (3)
  1. LEVOFLOXACIN [Suspect]
     Indication: PRODUCT USED FOR UNKNOWN INDICATION
     Route: 048
  2. FLUIMUCIL [Suspect]
     Indication: PRODUCT USED FOR UNKNOWN INDICATION
     Dosage: 300MG/3ML
     Route: 065
  3. AUGMENTIN [Concomitant]
     Indication: PYREXIA
     Route: 065

REACTIONS (4)
  - BRONCHOPNEUMONIA [None]
  - RASH GENERALISED [None]
  - HYPERSENSITIVITY [None]
  - PRURITUS GENERALISED [None]
